FAERS Safety Report 13692347 (Version 3)
Quarter: 2018Q1

REPORT INFORMATION
  Report Type: Spontaneous
  Country: US (occurrence: US)
  Receive Date: 20170627
  Receipt Date: 20180107
  Transmission Date: 20180508
  Serious: Yes (Hospitalization, Other)
  Sender: FDA-Public Use
  Company Number: US-SUN PHARMACEUTICAL INDUSTRIES LTD-2017US-143895

PATIENT
  Age: 33 Year
  Sex: Male

DRUGS (5)
  1. CEFAZOLIN [Concomitant]
     Active Substance: CEFAZOLIN
     Indication: PRODUCT USED FOR UNKNOWN INDICATION
     Route: 065
  2. LITHIUM. [Suspect]
     Active Substance: LITHIUM
     Indication: BIPOLAR DISORDER
     Route: 065
  3. SULBACTAM [Concomitant]
     Active Substance: SULBACTAM
     Indication: PRODUCT USED FOR UNKNOWN INDICATION
     Route: 065
  4. GENTAMICIN. [Concomitant]
     Active Substance: GENTAMICIN
     Indication: PRODUCT USED FOR UNKNOWN INDICATION
  5. AMPICILLIN [Concomitant]
     Active Substance: AMPICILLIN
     Indication: PRODUCT USED FOR UNKNOWN INDICATION
     Route: 065

REACTIONS (5)
  - Neurotoxicity [Unknown]
  - Cerebellar atrophy [Unknown]
  - Urosepsis [Unknown]
  - Cerebellar syndrome [Unknown]
  - Hyperthermia [Unknown]
